FAERS Safety Report 9155944 (Version 1)
Quarter: 2013Q1

REPORT INFORMATION
  Report Type: Spontaneous
  Country: AU (occurrence: AU)
  Receive Date: 20130311
  Receipt Date: 20130311
  Transmission Date: 20140127
  Serious: Yes (Death)
  Sender: FDA-Public Use
  Company Number: AU-PFIZER INC-2013077913

PATIENT
  Sex: Male

DRUGS (1)
  1. XYNTHA [Suspect]
     Dosage: UNK

REACTIONS (1)
  - Death [Fatal]
